FAERS Safety Report 9754074 (Version 1)
Quarter: 2013Q4

REPORT INFORMATION
  Report Type: Spontaneous
  Country: US (occurrence: US)
  Receive Date: 20131213
  Receipt Date: 20131213
  Transmission Date: 20140711
  Serious: No
  Sender: FDA-Public Use
  Company Number: US-GLAXOSMITHKLINE-A1015880A

PATIENT
  Age: 70 Year
  Sex: Female
  Weight: 113.6 kg

DRUGS (1)
  1. NICORETTE NICOTINE POLACRILEX MINT LOZENGE [Suspect]
     Indication: SMOKING CESSATION THERAPY
     Route: 048
     Dates: start: 20130305, end: 20130308

REACTIONS (3)
  - Hiccups [Recovered/Resolved]
  - Abdominal discomfort [Recovered/Resolved]
  - Product quality issue [Unknown]
